FAERS Safety Report 7162379 (Version 8)
Quarter: 2014Q1

REPORT INFORMATION
  Report Type: Spontaneous
  Country: US (occurrence: US)
  Receive Date: 20091029
  Receipt Date: 20140306
  Transmission Date: 20141002
  Serious: Yes (Hospitalization, Other)
  Sender: FDA-Public Use
  Company Number: US-ROCHE-644041

PATIENT
  Age: 21 Year
  Sex: Female
  Weight: 56.7 kg

DRUGS (4)
  1. ACCUTANE [Suspect]
     Indication: ACNE
     Route: 065
  2. ACCUTANE [Suspect]
     Dosage: DOSAGE INCREASED
     Route: 065
     Dates: start: 20011220, end: 20020212
  3. ZYBAN [Concomitant]
  4. RETIN-A MICRO [Concomitant]
     Indication: ACNE
     Dosage: DRUG NAME: RETIN-A MICRO GEL
     Route: 065

REACTIONS (20)
  - Crohn^s disease [Unknown]
  - Colitis ulcerative [Unknown]
  - Ileal stenosis [Unknown]
  - Inflammatory bowel disease [Unknown]
  - Depression [Unknown]
  - Small intestinal obstruction [Unknown]
  - Large intestine polyp [Unknown]
  - Sacroiliitis [Recovering/Resolving]
  - Irritable bowel syndrome [Unknown]
  - Uterine haemorrhage [Unknown]
  - Abdominal distension [Unknown]
  - Abdominal distension [Unknown]
  - Fatigue [Unknown]
  - Tremor [Unknown]
  - Asthenia [Unknown]
  - Dizziness [Unknown]
  - Acne [Unknown]
  - Syncope [Unknown]
  - Gastrooesophageal reflux disease [Unknown]
  - Anxiety [Unknown]
